FAERS Safety Report 15347450 (Version 1)
Quarter: 2018Q3

REPORT INFORMATION
  Report Type: Spontaneous
  Country: AU (occurrence: AU)
  Receive Date: 20180904
  Receipt Date: 20180904
  Transmission Date: 20181010
  Serious: Yes (Death)
  Sender: FDA-Public Use
  Company Number: AU-009507513-1808AUS013118

PATIENT
  Age: 80 Year
  Sex: Male

DRUGS (1)
  1. PEMBROLIZUMAB. [Suspect]
     Active Substance: PEMBROLIZUMAB
     Dosage: UNK
     Dates: start: 20170725

REACTIONS (3)
  - Muscular weakness [Fatal]
  - Myasthenic syndrome [Fatal]
  - Dysphagia [Fatal]

NARRATIVE: CASE EVENT DATE: 20170817
